FAERS Safety Report 21239214 (Version 3)
Quarter: 2024Q2

REPORT INFORMATION
  Report Type: Other
  Country: AU (occurrence: None)
  Receive Date: 20220822
  Receipt Date: 20240415
  Transmission Date: 20240716
  Serious: Yes (Death, Other)
  Sender: FDA-Public Use
  Company Number: AU-ROCHE-3164949

PATIENT
  Sex: Female

DRUGS (8)
  1. COBIMETINIB [Suspect]
     Active Substance: COBIMETINIB
     Indication: Neoplasm malignant
     Route: 048
  2. VEMURAFENIB [Suspect]
     Active Substance: VEMURAFENIB
     Indication: Neoplasm malignant
     Route: 048
  3. VEMURAFENIB [Suspect]
     Active Substance: VEMURAFENIB
     Route: 048
  4. APIXABAN [Concomitant]
     Active Substance: APIXABAN
  5. MAXIDEX [Concomitant]
     Active Substance: DEXAMETHASONE
  6. MICARDIS [Concomitant]
     Active Substance: TELMISARTAN
  7. LIPITOR [Concomitant]
     Active Substance: ATORVASTATIN CALCIUM
  8. THYROXINE [Concomitant]
     Active Substance: LEVOTHYROXINE

REACTIONS (12)
  - Death [Fatal]
  - Retinopathy [Not Recovered/Not Resolved]
  - Pleural effusion [Not Recovered/Not Resolved]
  - General physical health deterioration [Unknown]
  - Dermatitis acneiform [Recovered/Resolved]
  - Loss of personal independence in daily activities [Unknown]
  - Pruritus [Not Recovered/Not Resolved]
  - Nausea [Not Recovered/Not Resolved]
  - Alopecia [Not Recovered/Not Resolved]
  - Localised oedema [Not Recovered/Not Resolved]
  - Stomatitis [Recovered/Resolved]
  - Dysgeusia [Not Recovered/Not Resolved]
